FAERS Safety Report 20635492 (Version 1)
Quarter: 2022Q1

REPORT INFORMATION
  Report Type: Report from Study
  Country: US (occurrence: US)
  Receive Date: 20220325
  Receipt Date: 20220325
  Transmission Date: 20220423
  Serious: Yes (Hospitalization, Disabling, Other)
  Sender: FDA-Public Use
  Company Number: US-ABBVIE-22K-163-4324843-00

PATIENT
  Age: 74 Year
  Sex: Male
  Weight: 77.180 kg

DRUGS (4)
  1. SKYRIZI [Suspect]
     Active Substance: RISANKIZUMAB-RZAA
     Indication: Psoriasis
     Route: 058
     Dates: end: 2022
  2. SKYRIZI [Suspect]
     Active Substance: RISANKIZUMAB-RZAA
     Indication: Psoriasis
     Route: 058
  3. PFIZER-BIONTECH COVID-19 VACCINE [Concomitant]
     Active Substance: TOZINAMERAN
     Indication: COVID-19 immunisation
     Dosage: FIRST DOSE.
     Route: 030
     Dates: start: 202103, end: 202103
  4. PFIZER-BIONTECH COVID-19 VACCINE [Concomitant]
     Active Substance: TOZINAMERAN
     Dosage: SECOND DOSE.
     Route: 030
     Dates: start: 202104, end: 202104

REACTIONS (11)
  - Localised infection [Recovering/Resolving]
  - Dizziness [Recovering/Resolving]
  - Sepsis [Unknown]
  - Localised infection [Not Recovered/Not Resolved]
  - Blister [Unknown]
  - Malaise [Unknown]
  - Dizziness [Unknown]
  - Pain [Unknown]
  - Asthenia [Unknown]
  - Asthenia [Unknown]
  - Rehabilitation therapy [Unknown]

NARRATIVE: CASE EVENT DATE: 20220101
